FAERS Safety Report 4520613-6 (Version None)
Quarter: 2004Q4

REPORT INFORMATION
  Report Type: 
  Country: None (occurrence: None)
  Receive Date: 20041203
  Receipt Date: 20041124
  Transmission Date: 20050328
  Serious: Yes (Other)
  Sender: FDA-Public Use
  Company Number: 2004-11-1457

PATIENT
  Age: 53 Year
  Sex: Male
  Weight: 94 kg

DRUGS (2)
  1. RIBAVIRIN [Suspect]
     Indication: HEPATITIS C
     Dosage: 600 MG BID ORAL
     Route: 048
     Dates: start: 20040908, end: 20041001
  2. INFERGEN [Suspect]
     Indication: HEPATITIS C
     Dosage: 15 MCG QD SUBCUTANEOUS
     Route: 058
     Dates: start: 20040908, end: 20041001

REACTIONS (5)
  - ANAEMIA [None]
  - DILATATION ATRIAL [None]
  - DILATATION VENTRICULAR [None]
  - NEUTROPENIA [None]
  - PULMONARY HYPERTENSION [None]
